FAERS Safety Report 10965655 (Version 1)
Quarter: 2015Q1

REPORT INFORMATION
  Report Type: Spontaneous
  Country: US (occurrence: None)
  Receive Date: 20150226
  Receipt Date: 20150226
  Transmission Date: 20150721
  Serious: Yes (Hospitalization)
  Sender: FDA-Public Use
  Company Number: TPA2009A02409

PATIENT
  Age: 88 Year
  Sex: Male

DRUGS (13)
  1. COREG [Concomitant]
     Active Substance: CARVEDILOL
  2. TRENTAL (PENTOXIFYLLINE) [Concomitant]
  3. IRON [Concomitant]
     Active Substance: IRON
  4. BACTRIM DS (SULFAMETHOXAZOLE, TRIMETHORPIM) [Concomitant]
  5. ASPIRIN (ACETYLSALICYLIC ACID) [Concomitant]
     Active Substance: ASPIRIN
  6. OMEPRAZOLE. [Concomitant]
     Active Substance: OMEPRAZOLE
  7. CYMABLATA (DULOXETINE) [Concomitant]
  8. PROTONIX (PANTOPRAZOLE) [Concomitant]
  9. IMURAN [Suspect]
     Active Substance: AZATHIOPRINE
     Indication: PEMPHIGOID
  10. ULORIC [Suspect]
     Active Substance: FEBUXOSTAT
     Indication: BLOOD URIC ACID INCREASED
     Route: 048
     Dates: start: 20090618
  11. PREDNISONE. [Concomitant]
     Active Substance: PREDNISONE
  12. NAMENDA [Concomitant]
     Active Substance: MEMANTINE HYDROCHLORIDE
  13. DOCUSATE [Concomitant]
     Active Substance: DOCUSATE

REACTIONS (3)
  - Drug interaction [None]
  - Anaemia macrocytic [None]
  - Leukopenia [None]

NARRATIVE: CASE EVENT DATE: 20090811
